FAERS Safety Report 4943401-5 (Version None)
Quarter: 2006Q1

REPORT INFORMATION
  Report Type: 
  Country: None (occurrence: None)
  Receive Date: 20060314
  Receipt Date: 20060227
  Transmission Date: 20060701
  Serious: Yes (Hospitalization)
  Sender: FDA-Public Use
  Company Number: HQWYE043428FEB06

PATIENT
  Sex: Male
  Weight: 73 kg

DRUGS (6)
  1. ENBREL [Suspect]
     Indication: PSORIASIS
     Route: 058
     Dates: start: 20050201, end: 20060120
  2. ENBREL [Suspect]
     Indication: PSORIATIC ARTHROPATHY
  3. DICLOFENAC SODIUM [Concomitant]
     Indication: ARTHRALGIA
     Dosage: 25 MG ^2X1^
     Route: 048
  4. REPAGLINIDE [Concomitant]
     Indication: DIABETES MELLITUS
     Dosage: ^3X1^
     Route: 048
  5. PREDNISOLONE [Concomitant]
     Indication: ARTHRALGIA
     Dosage: 16 MG ^1X1^
     Route: 048
  6. HYDROXYZINE [Concomitant]
     Indication: PRURITUS
     Dosage: 25 MG ^1X1^
     Route: 048

REACTIONS (4)
  - ARTHRITIS [None]
  - CONDITION AGGRAVATED [None]
  - CONGESTIVE CARDIOMYOPATHY [None]
  - VENTRICULAR TACHYCARDIA [None]
